FAERS Safety Report 5743973-7 (Version None)
Quarter: 2008Q2

REPORT INFORMATION
  Report Type: 
  Country: None (occurrence: None)
  Receive Date: 20080516
  Receipt Date: 20080516
  Transmission Date: 20081010
  Serious: Yes (Life-Threatening, Hospitalization)
  Sender: FDA-Public Use
  Company Number: None

PATIENT
  Age: 82 Year
  Sex: Female
  Weight: 80.7403 kg

DRUGS (1)
  1. DIGOXIN [Suspect]
     Indication: CARDIOACTIVE DRUG LEVEL INCREASED
     Dosage: 20MG 2 TIMES PER DAY OTHER
     Route: 050
     Dates: start: 19850107, end: 20070407

REACTIONS (2)
  - INJURY [None]
  - UNEVALUABLE EVENT [None]
